FAERS Safety Report 11603464 (Version 2)
Quarter: 2016Q1

REPORT INFORMATION
  Report Type: Spontaneous
  Country: US (occurrence: US)
  Receive Date: 20151007
  Receipt Date: 20160105
  Transmission Date: 20160525
  Serious: Yes (Hospitalization)
  Sender: FDA-Public Use
  Company Number: US-ROCHE-ITM201506IM018435

PATIENT
  Sex: Male
  Weight: 102.15 kg

DRUGS (1)
  1. ESBRIET [Suspect]
     Active Substance: PIRFENIDONE
     Indication: IDIOPATHIC PULMONARY FIBROSIS
     Dosage: 3 CAPSULE ORAL THREE TIMES IN A DAY
     Route: 048
     Dates: start: 20150527

REACTIONS (6)
  - Cerebrovascular accident [Unknown]
  - Dysgeusia [Unknown]
  - Decreased appetite [Unknown]
  - Fatigue [Unknown]
  - Ageusia [Unknown]
  - Thrombosis [Unknown]
